FAERS Safety Report 6092972-7 (Version None)
Quarter: 2009Q1

REPORT INFORMATION
  Report Type: 
  Country: None (occurrence: None)
  Receive Date: 20090224
  Receipt Date: 20090210
  Transmission Date: 20090719
  Serious: Yes (Hospitalization)
  Sender: FDA-Public Use
  Company Number: KV200900180

PATIENT
  Sex: Female

DRUGS (1)
  1. HISTINEX HC(ANTITUSSIVE, NASAL DESCONGESTANT, ANTIHISTAMINE) SYRUP [Suspect]
     Indication: DRUG USE FOR UNKNOWN INDICATION
     Dosage: ORAL
     Route: 048
     Dates: start: 20080214

REACTIONS (2)
  - SYNCOPE [None]
  - THERMAL BURN [None]
